FAERS Safety Report 19922871 (Version 2)
Quarter: 2021Q4

REPORT INFORMATION
  Report Type: Spontaneous
  Country: US (occurrence: US)
  Receive Date: 20211005
  Receipt Date: 20211013
  Transmission Date: 20220303
  Serious: Yes (Other)
  Sender: FDA-Public Use
  Company Number: US-PFIZER INC-202101253135

PATIENT
  Age: 81 Year
  Sex: Male
  Weight: 64.9 kg

DRUGS (4)
  1. ROPIVACAINE HYDROCHLORIDE [Interacting]
     Active Substance: ROPIVACAINE HYDROCHLORIDE
     Indication: Spinal anaesthesia
     Dosage: 30 ML
  2. DAPSONE [Interacting]
     Active Substance: DAPSONE
     Indication: Pemphigoid
     Dosage: UNK
     Dates: start: 202011
  3. LIDOCAINE [Interacting]
     Active Substance: LIDOCAINE
     Indication: Spinal anaesthesia
     Dosage: 5 ML
     Route: 061
  4. FENTANYL [Concomitant]
     Active Substance: FENTANYL
     Indication: Anxiety
     Dosage: 25 MCG

REACTIONS (2)
  - Methaemoglobinaemia [Unknown]
  - Drug interaction [Unknown]
